FAERS Safety Report 24916972 (Version 1)
Quarter: 2025Q1

REPORT INFORMATION
  Report Type: Spontaneous
  Country: US (occurrence: None)
  Receive Date: 20250201
  Receipt Date: 20250201
  Transmission Date: 20250409
  Serious: No
  Sender: FDA-CTU
  Company Number: None

PATIENT
  Age: 37 Year
  Sex: Female
  Weight: 76.5 kg

DRUGS (1)
  1. IMURAN [Suspect]
     Active Substance: AZATHIOPRINE
     Indication: Immunosuppressant drug therapy
     Dosage: OTHER QUANTITY : 1 CAPSULE(S);?FREQUENCY : TWICE A DAY;?
     Route: 048

REACTIONS (7)
  - Abdominal pain upper [None]
  - Hallucination, auditory [None]
  - Electric shock sensation [None]
  - Alopecia [None]
  - Headache [None]
  - Hallucination, visual [None]
  - Hyperaesthesia teeth [None]

NARRATIVE: CASE EVENT DATE: 20240215
